FAERS Safety Report 25426803 (Version 1)
Quarter: 2025Q2

REPORT INFORMATION
  Report Type: Spontaneous
  Country: US (occurrence: US)
  Receive Date: 20250612
  Receipt Date: 20250612
  Transmission Date: 20250716
  Serious: No
  Sender: ROCHE
  Company Number: US-ROCHE-10000307438

PATIENT
  Sex: Male
  Weight: 182 kg

DRUGS (9)
  1. ACTEMRA [Suspect]
     Active Substance: TOCILIZUMAB
     Indication: Rheumatoid arthritis
     Route: 058
  2. ASPIRIN [Concomitant]
     Active Substance: ASPIRIN
  3. TIZANIDINE [Concomitant]
     Active Substance: TIZANIDINE
  4. VALSARTAN AND HYDROCHLOROTHIAZIDE [Concomitant]
     Active Substance: HYDROCHLOROTHIAZIDE\VALSARTAN
  5. METFORMIN [Concomitant]
     Active Substance: METFORMIN HYDROCHLORIDE
  6. AMLODIPINE [Concomitant]
     Active Substance: AMLODIPINE BESYLATE
  7. DICLOFENAC [Concomitant]
     Active Substance: DICLOFENAC
  8. ATORVASTATIN [Concomitant]
     Active Substance: ATORVASTATIN
  9. MELOXICAM [Concomitant]
     Active Substance: MELOXICAM

REACTIONS (1)
  - Blood pressure increased [Unknown]
